FAERS Safety Report 16001354 (Version 1)
Quarter: 2019Q1

REPORT INFORMATION
  Report Type: Spontaneous
  Country: US (occurrence: US)
  Receive Date: 20190224
  Receipt Date: 20190224
  Transmission Date: 20190418
  Serious: Yes (Other)
  Sender: FDA-Public Use
  Company Number: None

PATIENT
  Age: 6 Year
  Sex: Male
  Weight: 22.28 kg

DRUGS (1)
  1. OSELTAMIVIR PHOSPHATE (GENERIC FOR TAMIFLU) [Suspect]
     Active Substance: OSELTAMIVIR PHOSPHATE
     Indication: INFLUENZA
     Dosage: ?          QUANTITY:1.5 TEASPOON(S);?
     Route: 048
     Dates: start: 20190223, end: 20190224

REACTIONS (3)
  - Disorientation [None]
  - Nightmare [None]
  - Crying [None]

NARRATIVE: CASE EVENT DATE: 20190224
